FAERS Safety Report 4734569-4 (Version None)
Quarter: 2005Q3

REPORT INFORMATION
  Report Type: 
  Country: None (occurrence: None)
  Receive Date: 20050729
  Receipt Date: 20050715
  Transmission Date: 20060218
  Serious: Yes (Hospitalization, Other)
  Sender: FDA-Public Use
  Company Number: 2005088311

PATIENT
  Age: 85 Year
  Sex: Female

DRUGS (1)
  1. MACUGEN [Suspect]
     Indication: ILL-DEFINED DISORDER
     Dosage: INTRAVITREOUS
     Dates: start: 20050607

REACTIONS (4)
  - ANAPHYLACTIC REACTION [None]
  - BRONCHOSTENOSIS [None]
  - CIRCULATORY COLLAPSE [None]
  - DYSPNOEA [None]
